FAERS Safety Report 9648338 (Version 1)
Quarter: 2013Q4

REPORT INFORMATION
  Report Type: Spontaneous
  Country: US (occurrence: US)
  Receive Date: 20131028
  Receipt Date: 20131028
  Transmission Date: 20140711
  Serious: No
  Sender: FDA-Public Use
  Company Number: US-009507513-1310USA008192

PATIENT
  Age: 20 Year
  Sex: Female

DRUGS (3)
  1. NEXPLANON [Suspect]
     Indication: CONTRACEPTION
     Dosage: UNK
     Route: 059
     Dates: start: 20130606
  2. VENLAFAXINE HYDROCHLORIDE [Concomitant]
  3. OMEPRAZOLE [Concomitant]

REACTIONS (2)
  - Haemorrhage [Unknown]
  - Increased appetite [Unknown]
